FAERS Safety Report 7510968-2 (Version None)
Quarter: 2011Q2

REPORT INFORMATION
  Report Type: 
  Country: None (occurrence: None)
  Receive Date: 20110531
  Receipt Date: 20110524
  Transmission Date: 20111010
  Serious: No
  Sender: FDA-Public Use
  Company Number: US-PFIZER INC-2011112683

PATIENT
  Sex: Male

DRUGS (1)
  1. VIRACEPT [Suspect]
     Indication: HIV INFECTION

REACTIONS (1)
  - DIARRHOEA [None]
